FAERS Safety Report 10428717 (Version 1)
Quarter: 2014Q3

REPORT INFORMATION
  Report Type: Spontaneous
  Country: NL (occurrence: None)
  Receive Date: 20140902
  Receipt Date: 20140902
  Transmission Date: 20150326
  Serious: Yes (Other)
  Sender: FDA-Public Use
  Company Number: VAL_03350_2014

PATIENT
  Age: 15 Year
  Sex: Male

DRUGS (13)
  1. METOPROLOL (METOPROLOL TARTRATE) [Suspect]
     Active Substance: METOPROLOL TARTRATE
     Indication: PRODUCT USED FOR UNKNOWN INDICATION
     Dosage: DF ORAL
     Route: 048
  2. RISPERIDONE (RISPERIDONE) [Suspect]
     Active Substance: RISPERIDONE
     Indication: DELIRIUM
     Dosage: DF
  3. LIDOCAINE. [Concomitant]
     Active Substance: LIDOCAINE
  4. MIDAZOLAM [Concomitant]
     Active Substance: MIDAZOLAM\MIDAZOLAM HYDROCHLORIDE
  5. CLONIDINE. [Concomitant]
     Active Substance: CLONIDINE
  6. MORPHINE [Concomitant]
     Active Substance: MORPHINE
  7. FUROSEMIDE. [Concomitant]
     Active Substance: FUROSEMIDE
  8. PHENYTOIN. [Concomitant]
     Active Substance: PHENYTOIN
  9. PROPOFOL. [Concomitant]
     Active Substance: PROPOFOL
  10. ESMOLOL [Suspect]
     Active Substance: ESMOLOL HYDROCHLORIDE
     Indication: ARRHYTHMIA
     Dosage: 20-400 UG/KG/MIN?
  11. BENZODIAZEPINE RELATED DRUGS [Concomitant]
     Active Substance: BENZODIAZEPINE
  12. HALOPERIDOL (HALOPERIDOL) (HALOPERIDOL) [Suspect]
     Active Substance: HALOPERIDOL
     Indication: DELIRIUM
     Dosage: DF
  13. AMIODARONE [Concomitant]
     Active Substance: AMIODARONE

REACTIONS (7)
  - Delirium [None]
  - Aggression [None]
  - Drug ineffective [None]
  - Restlessness [None]
  - Product quality issue [None]
  - Irritability [None]
  - Incoherent [None]
